FAERS Safety Report 7421591-2 (Version None)
Quarter: 2011Q1

REPORT INFORMATION
  Report Type: 
  Country: None (occurrence: None)
  Receive Date: 20110302
  Receipt Date: 20101118
  Transmission Date: 20110831
  Serious: No
  Sender: FDA-Public Use
  Company Number: 022263

PATIENT
  Sex: Female

DRUGS (1)
  1. CIMZIA [Suspect]
     Indication: RHEUMATOID ARTHRITIS
     Dosage: 200 MG 1X/2 WEEKS  SUBCUTANEOUS
     Route: 058
     Dates: start: 20100401, end: 20101025

REACTIONS (2)
  - FATIGUE [None]
  - INFLAMMATION [None]
